FAERS Safety Report 9182219 (Version 1)
Quarter: 2012Q4

REPORT INFORMATION
  Report Type: 
  Country: US (occurrence: US)
  Receive Date: 20121030
  Receipt Date: 20121030
  Transmission Date: 20130627
  Serious: No
  Sender: FDA-Public Use
  Company Number: US-GLAXOSMITHKLINE-A0963524A

PATIENT
  Age: 82 Year
  Sex: Male
  Weight: 45.5 kg

DRUGS (8)
  1. SEREVENT [Suspect]
     Indication: ASTHMA
     Dosage: 1PUFF Twice per day
     Route: 055
     Dates: start: 199101
  2. ADVAIR [Suspect]
     Indication: ASTHMA
     Route: 055
     Dates: start: 199101
  3. FLUTICASONE [Concomitant]
  4. QVAR [Concomitant]
  5. ANDROGEL [Concomitant]
  6. ALPRAZOLAM [Concomitant]
  7. IBUPROFEN [Concomitant]
  8. ALBUTEROL [Concomitant]

REACTIONS (3)
  - Cough [Recovered/Resolved]
  - Cough [Unknown]
  - Product quality issue [Unknown]
